FAERS Safety Report 21052897 (Version 1)
Quarter: 2022Q3

REPORT INFORMATION
  Report Type: Spontaneous
  Country: US (occurrence: None)
  Receive Date: 20220707
  Receipt Date: 20220707
  Transmission Date: 20221027
  Serious: Yes (Hospitalization)
  Sender: FDA-Public Use
  Company Number: None

PATIENT
  Age: 8 Year
  Sex: Female
  Weight: 31.9 kg

DRUGS (4)
  1. MERCAPTOPURINE [Suspect]
     Active Substance: MERCAPTOPURINE
     Dates: end: 20220622
  2. METHOTREXATE [Suspect]
     Active Substance: METHOTREXATE
     Dates: end: 20220622
  3. PREDNISONE [Suspect]
     Active Substance: PREDNISONE
     Dates: end: 20220516
  4. VINCRISTINE SULFATE [Suspect]
     Active Substance: VINCRISTINE SULFATE
     Dates: end: 20220511

REACTIONS (4)
  - Pancytopenia [None]
  - Neutropenic colitis [None]
  - Stomatitis [None]
  - Myelosuppression [None]

NARRATIVE: CASE EVENT DATE: 20220628
